FAERS Safety Report 19485742 (Version 2)
Quarter: 2021Q3

REPORT INFORMATION
  Report Type: Report from Study
  Country: DE (occurrence: DE)
  Receive Date: 20210702
  Receipt Date: 20210902
  Transmission Date: 20211014
  Serious: No
  Sender: FDA-Public Use
  Company Number: DE-SA-2021SA215643

PATIENT
  Age: 58 Year
  Sex: Male

DRUGS (5)
  1. PIPERACILLIN/TAZOBACTAM [Concomitant]
     Active Substance: PIPERACILLIN SODIUM\TAZOBACTAM SODIUM
     Indication: ADVERSE EVENT
     Dosage: 3.5 MG, QID
     Route: 048
     Dates: start: 20210201, end: 20210204
  2. PLERIXAFOR [Suspect]
     Active Substance: PLERIXAFOR
     Indication: LYMPHOMA
     Dosage: 0.24 MG/KG, QD
     Route: 058
     Dates: start: 20210129, end: 20210129
  3. MEROPENEM. [Concomitant]
     Active Substance: MEROPENEM
     Indication: ADVERSE EVENT
     Route: 048
     Dates: start: 20210205, end: 20210216
  4. ERYTHROCYTES [Concomitant]
     Active Substance: HUMAN RED BLOOD CELL
     Indication: ADVERSE EVENT
     Dosage: UNK, 1X
     Route: 042
  5. PIPERACILLIN/TAZOBACTAM [Concomitant]
     Active Substance: PIPERACILLIN SODIUM\TAZOBACTAM SODIUM
     Dosage: UNK
     Route: 048
     Dates: start: 20210428, end: 20210504

REACTIONS (1)
  - Clostridium difficile infection [Recovered/Resolved]

NARRATIVE: CASE EVENT DATE: 20210501
